FAERS Safety Report 13500719 (Version 1)
Quarter: 2017Q2

REPORT INFORMATION
  Report Type: Spontaneous
  Country: US (occurrence: US)
  Receive Date: 20170501
  Receipt Date: 20170501
  Transmission Date: 20170830
  Serious: No
  Sender: FDA-Public Use
  Company Number: US-MAYNE PHARMA-2016MYN000287

PATIENT
  Sex: Female

DRUGS (1)
  1. LIOTHYRONINE [Suspect]
     Active Substance: LIOTHYRONINE
     Indication: THYROID HORMONE REPLACEMENT THERAPY
     Dosage: UNK
     Dates: start: 201604

REACTIONS (4)
  - Arthralgia [Not Recovered/Not Resolved]
  - Expired product administered [Unknown]
  - Abdominal distension [Not Recovered/Not Resolved]
  - Abdominal discomfort [Not Recovered/Not Resolved]

NARRATIVE: CASE EVENT DATE: 201604
